FAERS Safety Report 21395149 (Version 2)
Quarter: 2022Q4

REPORT INFORMATION
  Report Type: Spontaneous
  Country: ES (occurrence: ES)
  Receive Date: 20220930
  Receipt Date: 20221017
  Transmission Date: 20230112
  Serious: Yes (Life-Threatening, Hospitalization)
  Sender: FDA-Public Use
  Company Number: None

PATIENT
  Sex: Male

DRUGS (3)
  1. TECHNETIUM TC-99M MERTIATIDE KIT [Suspect]
     Active Substance: TECHNETIUM TC-99M MERTIATIDE
     Indication: Renal scan
     Route: 040
     Dates: start: 20210216, end: 20210216
  2. SODIUM CHLORIDE [Concomitant]
     Active Substance: SODIUM CHLORIDE
     Indication: Renal scan
     Route: 040
     Dates: start: 20210216, end: 20210216
  3. FUROSEMIDE [Concomitant]
     Active Substance: FUROSEMIDE
     Indication: Renal scan
     Route: 040
     Dates: start: 20210216, end: 20210216

REACTIONS (2)
  - Respiratory arrest [Recovering/Resolving]
  - Seizure [Recovering/Resolving]

NARRATIVE: CASE EVENT DATE: 20210216
